FAERS Safety Report 20246341 (Version 1)
Quarter: 2021Q4

REPORT INFORMATION
  Report Type: Spontaneous
  Country: US (occurrence: None)
  Receive Date: 20211228
  Receipt Date: 20211228
  Transmission Date: 20220303
  Serious: Yes (Life-Threatening)
  Sender: FDA-Public Use
  Company Number: None

PATIENT
  Age: 81 Year
  Sex: Female
  Weight: 57 kg

DRUGS (2)
  1. LISINOPRIL [Suspect]
     Active Substance: LISINOPRIL
     Dosage: FREQUENCY : DAILY;?
     Route: 048
  2. SYMBICORT [Concomitant]
     Active Substance: BUDESONIDE\FORMOTEROL FUMARATE DIHYDRATE
     Dates: start: 20210714, end: 20210728

REACTIONS (5)
  - Fall [None]
  - Haemorrhage intracranial [None]
  - Dyspnoea [None]
  - Hypotension [None]
  - Angioedema [None]

NARRATIVE: CASE EVENT DATE: 20210716
